FAERS Safety Report 10706570 (Version 1)
Quarter: 2015Q1

REPORT INFORMATION
  Report Type: Spontaneous
  Country: US (occurrence: US)
  Receive Date: 20150113
  Receipt Date: 20150113
  Transmission Date: 20150721
  Serious: Yes (Hospitalization)
  Sender: FDA-Public Use
  Company Number: US-RANBAXY-2014US-91496

PATIENT
  Age: 37 Year
  Sex: Female

DRUGS (1)
  1. IBUPROFEN. [Suspect]
     Active Substance: IBUPROFEN
     Indication: PRODUCT USED FOR UNKNOWN INDICATION
     Dosage: UNK
     Route: 065

REACTIONS (21)
  - Jaundice [Unknown]
  - Diarrhoea [Unknown]
  - Slow response to stimuli [Unknown]
  - Tachypnoea [Unknown]
  - Tachycardia [Unknown]
  - Asterixis [Unknown]
  - Vomiting [Unknown]
  - Abdominal pain [Unknown]
  - Fatigue [Unknown]
  - Tremor [Unknown]
  - Telangiectasia [Unknown]
  - Orthostatic hypotension [Unknown]
  - Gingival bleeding [Unknown]
  - Liver palpable [Unknown]
  - Increased tendency to bruise [Unknown]
  - Nausea [Unknown]
  - Occult blood positive [Unknown]
  - Decreased appetite [Unknown]
  - Abdominal distension [Unknown]
  - Palmar erythema [Unknown]
  - Gastrointestinal sounds abnormal [Unknown]
